FAERS Safety Report 7959964-1 (Version None)
Quarter: 2011Q4

REPORT INFORMATION
  Report Type: 
  Country: None (occurrence: None)
  Receive Date: 20111206
  Receipt Date: 20111130
  Transmission Date: 20120403
  Serious: Yes (Other)
  Sender: FDA-Public Use
  Company Number: FR-EISAI INC-E2090-00844-SPO-FR

PATIENT
  Age: 27 Year
  Sex: Female
  Weight: 47 kg

DRUGS (7)
  1. PULMICORT [Concomitant]
     Indication: RESPIRATORY DISORDER
     Route: 055
  2. PROPRANOLOL [Concomitant]
     Indication: MIGRAINE
     Route: 048
  3. ZONEGRAN [Suspect]
     Indication: EPILEPSY
     Route: 048
     Dates: start: 20090915, end: 20090915
  4. TOPIRAMATE [Concomitant]
     Route: 048
     Dates: start: 20090915, end: 20090915
  5. TOPIRAMATE [Concomitant]
     Route: 048
     Dates: start: 20090916
  6. TERBUTALINE [Concomitant]
     Indication: RESPIRATORY DISORDER
     Route: 055
  7. TOPIRAMATE [Concomitant]
     Indication: EPILEPSY
     Route: 048
     Dates: end: 20090914

REACTIONS (1)
  - TONGUE OEDEMA [None]
